FAERS Safety Report 6248226-9 (Version None)
Quarter: 2009Q2

REPORT INFORMATION
  Report Type: 
  Country: None (occurrence: None)
  Receive Date: 20090624
  Receipt Date: 20090610
  Transmission Date: 20091009
  Serious: Yes (Death)
  Sender: FDA-Public Use
  Company Number: ADE# 09-246DPR

PATIENT
  Age: 82 Year
  Sex: Female

DRUGS (1)
  1. DIGOXIN [Suspect]
     Indication: HEART RATE ABNORMAL
     Dosage: ONE TABLET DAILY

REACTIONS (3)
  - ASTHENIA [None]
  - FATIGUE [None]
  - SENSATION OF HEAVINESS [None]
